FAERS Safety Report 5724503-2 (Version None)
Quarter: 2008Q2

REPORT INFORMATION
  Report Type: 
  Country: None (occurrence: None)
  Receive Date: 20080429
  Receipt Date: 20080418
  Transmission Date: 20081010
  Serious: Yes (Other)
  Sender: FDA-Public Use
  Company Number: GXKR2008GB03777

PATIENT
  Age: 90 Year
  Sex: Male

DRUGS (6)
  1. FUROSEMIDE+AMILORIDE (NGX) (AMILORIDE, FUROSEMIDE) UNKNOWN [Suspect]
     Dosage: 1 DF, BID, ORAL
     Route: 048
     Dates: start: 20070731, end: 20080327
  2. ADCAL-D3 (CALCIUM CARBONATE, COLECALCIFEROL) [Concomitant]
  3. AMOXICILLIN [Concomitant]
  4. CODEINE PHOSPHATE AND ACETAMINOPHEN [Concomitant]
  5. DICLOFENAC SODIUM [Concomitant]
  6. MOVICOL (MACROGOL, POTASSIUM CHLORIDE, SODIUM BICARBONATE, SODIUM CHLO [Concomitant]

REACTIONS (2)
  - BLOOD PRESSURE DECREASED [None]
  - DEHYDRATION [None]
